FAERS Safety Report 15106001 (Version 11)
Quarter: 2019Q3

REPORT INFORMATION
  Report Type: Report from Study
  Country: CA (occurrence: CA)
  Receive Date: 20180704
  Receipt Date: 20190919
  Transmission Date: 20191004
  Serious: Yes (Other)
  Sender: FDA-Public Use
  Company Number: CA-ROCHE-2137686

PATIENT
  Age: 34 Year
  Sex: Female

DRUGS (1)
  1. OCREVUS [Suspect]
     Active Substance: OCRELIZUMAB
     Indication: RELAPSING-REMITTING MULTIPLE SCLEROSIS
     Dosage: 300MG DAY 1, 15 THEN Q6MONTHS?01/MAR/2019
     Route: 042
     Dates: start: 20180605

REACTIONS (12)
  - Hypoaesthesia [Not Recovered/Not Resolved]
  - Joint dislocation [Recovering/Resolving]
  - Increased upper airway secretion [Not Recovered/Not Resolved]
  - Fatigue [Recovered/Resolved]
  - Tremor [Not Recovered/Not Resolved]
  - Rhinorrhoea [Unknown]
  - Urinary tract infection [Unknown]
  - Amnesia [Unknown]
  - Hypoaesthesia oral [Not Recovered/Not Resolved]
  - Bronchitis [Unknown]
  - Insomnia [Unknown]
  - Nasal congestion [Unknown]

NARRATIVE: CASE EVENT DATE: 20180606
